FAERS Safety Report 9783875 (Version 1)
Quarter: 2013Q4

REPORT INFORMATION
  Report Type: Spontaneous
  Country: US (occurrence: US)
  Receive Date: 20131226
  Receipt Date: 20131226
  Transmission Date: 20140711
  Serious: No
  Sender: FDA-Public Use
  Company Number: US-PFIZER INC-2013365218

PATIENT
  Age: 36 Year
  Sex: Male
  Weight: 104.31 kg

DRUGS (2)
  1. SULFASALAZINE [Suspect]
     Indication: CROHN^S DISEASE
     Dosage: 500 MG (TAKING TWO TABLETS OF 250MG), 2X/DAY
     Route: 048
     Dates: start: 2010
  2. PENTASA [Concomitant]
     Dosage: UNK
     Route: 042

REACTIONS (1)
  - Renal pain [Recovered/Resolved]
